FAERS Safety Report 21749696 (Version 1)
Quarter: 2022Q4

REPORT INFORMATION
  Report Type: Spontaneous
  Country: JP (occurrence: JP)
  Receive Date: 20221219
  Receipt Date: 20221219
  Transmission Date: 20230113
  Serious: Yes (Death, Hospitalization)
  Sender: FDA-Public Use
  Company Number: JP-ANIPHARMA-2022-JP-000563

PATIENT
  Age: 88 Year
  Sex: Male

DRUGS (2)
  1. BICALUTAMIDE [Suspect]
     Active Substance: BICALUTAMIDE
     Indication: Prostate cancer
     Dosage: 80 MG QD
     Route: 048
  2. LH-RH(GONADORELIN DIACETATE) [Concomitant]

REACTIONS (1)
  - Paraneoplastic neurological syndrome [Fatal]
